FAERS Safety Report 19217092 (Version 2)
Quarter: 2022Q3

REPORT INFORMATION
  Report Type: Spontaneous
  Country: FR (occurrence: FR)
  Receive Date: 20210505
  Receipt Date: 20220729
  Transmission Date: 20221027
  Serious: Yes (Death, Life-Threatening, Hospitalization)
  Sender: FDA-Public Use
  Company Number: None

PATIENT
  Age: 51 Year
  Sex: Male
  Weight: 66 kg

DRUGS (4)
  1. FLUOROURACIL [Suspect]
     Active Substance: FLUOROURACIL
     Indication: Rectal adenocarcinoma
     Dosage: 50 MG / ML
     Route: 042
     Dates: start: 20210202, end: 20210204
  2. OXALIPLATIN [Suspect]
     Active Substance: OXALIPLATIN
     Indication: Product used for unknown indication
     Route: 042
     Dates: start: 20210202, end: 20210202
  3. IRINOTECAN [Suspect]
     Active Substance: IRINOTECAN
     Indication: Rectal adenocarcinoma
     Route: 042
     Dates: start: 20210202, end: 20210202
  4. LEVOLEUCOVORIN CALCIUM [Suspect]
     Active Substance: LEVOLEUCOVORIN CALCIUM
     Indication: Chemotherapy toxicity attenuation
     Route: 042
     Dates: start: 20210202, end: 20210202

REACTIONS (2)
  - Bone marrow failure [Recovering/Resolving]
  - Enterocolitis [Fatal]

NARRATIVE: CASE EVENT DATE: 20210210
